FAERS Safety Report 16544917 (Version 1)
Quarter: 2019Q3

REPORT INFORMATION
  Report Type: Spontaneous
  Country: US (occurrence: US)
  Receive Date: 20190708
  Receipt Date: 20190708
  Transmission Date: 20191004
  Serious: Yes (Hospitalization)
  Sender: FDA-Public Use
  Company Number: None

PATIENT
  Age: 60 Year
  Sex: Male

DRUGS (5)
  1. CITALOPRAM [Concomitant]
     Active Substance: CITALOPRAM HYDROBROMIDE
  2. SOFOS/VELPAT [Suspect]
     Active Substance: SOFOSBUVIR\VELPATASVIR
     Indication: HEPATITIS C
     Route: 048
     Dates: start: 20190520
  3. FOLIC ACID. [Concomitant]
     Active Substance: FOLIC ACID
  4. LORAZEPAM. [Concomitant]
     Active Substance: LORAZEPAM
  5. QUETIAPINE. [Concomitant]
     Active Substance: QUETIAPINE

REACTIONS (5)
  - Bipolar disorder [None]
  - Tremor [None]
  - Dizziness [None]
  - Nervousness [None]
  - Post-traumatic stress disorder [None]

NARRATIVE: CASE EVENT DATE: 20190705
